FAERS Safety Report 24758697 (Version 1)
Quarter: 2024Q4

REPORT INFORMATION
  Report Type: Spontaneous
  Country: US (occurrence: None)
  Receive Date: 20241219
  Receipt Date: 20241219
  Transmission Date: 20250115
  Serious: No
  Sender: Public
  Company Number: None

PATIENT
  Age: 82 Year
  Sex: Female

DRUGS (2)
  1. SKYRIZI [Suspect]
     Active Substance: RISANKIZUMAB-RZAA
     Indication: Palmoplantar pustulosis
     Dosage: OTHER FREQUENCY : WK0 AND WK4 AS DIRECTED
     Route: 058
     Dates: start: 202308
  2. COVID-19 VACCINE NOS [Suspect]
     Active Substance: COVID-19 VACCINE
     Indication: Palmoplantar pustulosis

REACTIONS (5)
  - COVID-19 immunisation [None]
  - Immunisation reaction [None]
  - Illness [None]
  - Post procedural complication [None]
  - Urticaria [None]
